FAERS Safety Report 20884119 (Version 1)
Quarter: 2022Q2

REPORT INFORMATION
  Report Type: Spontaneous
  Country: US (occurrence: US)
  Receive Date: 20220527
  Receipt Date: 20220527
  Transmission Date: 20220721
  Serious: Yes (Other)
  Sender: FDA-Public Use
  Company Number: US-MYLANLABS-2022M1038981

PATIENT
  Age: 50 Year
  Sex: Female

DRUGS (1)
  1. POTASSIUM [Suspect]
     Active Substance: POTASSIUM
     Indication: Product used for unknown indication
     Dosage: UNK,EXTRAVASATION OF POTASSIUM PHOSPHATE SOLUTION INTO THE SITE FROM AN INTRAVENOUS CATHETER
     Route: 042

REACTIONS (2)
  - Administration site extravasation [Recovering/Resolving]
  - Cutaneous calcification [Recovering/Resolving]
